FAERS Safety Report 16066191 (Version 1)
Quarter: 2019Q1

REPORT INFORMATION
  Report Type: Spontaneous
  Country: US (occurrence: US)
  Receive Date: 20190313
  Receipt Date: 20190313
  Transmission Date: 20190418
  Serious: No
  Sender: FDA-Public Use
  Company Number: US-BION-007006

PATIENT
  Age: 70 Year
  Sex: Male

DRUGS (9)
  1. CENTRUM SILVER [Concomitant]
     Active Substance: MINERALS\VITAMINS
  2. LYCOPENE [Concomitant]
     Active Substance: LYCOPENE
  3. SYMBICORT [Concomitant]
     Active Substance: BUDESONIDE\FORMOTEROL FUMARATE DIHYDRATE
  4. BENZONATATE. [Suspect]
     Active Substance: BENZONATATE
     Indication: PRODUCT USED FOR UNKNOWN INDICATION
  5. LUPRON [Concomitant]
     Active Substance: LEUPROLIDE ACETATE
  6. FENTANYL. [Concomitant]
     Active Substance: FENTANYL
  7. POTASSIUM [Concomitant]
     Active Substance: POTASSIUM
  8. XTANDI [Suspect]
     Active Substance: ENZALUTAMIDE
     Indication: PROSTATE CANCER
     Dosage: STRENGTH: 40 MG?160 MG ONCE DAILY
     Route: 048
     Dates: start: 20180108
  9. IBUPROFEN. [Concomitant]
     Active Substance: IBUPROFEN

REACTIONS (2)
  - Hot flush [Recovering/Resolving]
  - Cold sweat [Unknown]
